FAERS Safety Report 10231170 (Version 1)
Quarter: 2014Q2

REPORT INFORMATION
  Report Type: Spontaneous
  Country: US (occurrence: None)
  Receive Date: 20140506
  Receipt Date: 20140506
  Transmission Date: 20141212
  Serious: Yes (Hospitalization, Other)
  Sender: FDA-Public Use
  Company Number: 1190652

PATIENT
  Age: 49 Year
  Sex: Male
  Weight: 83.46 kg

DRUGS (8)
  1. AVASTIN (BEVACIZUMAB) [Suspect]
     Indication: COLON CANCER
     Dosage: (NOT OTHERWISE SPECIFIED)
     Route: 042
  2. OXALIPLATIN(OXALIPLATIN) [Concomitant]
  3. LEUCOVORIN(CALCIUM FOLINATE) [Concomitant]
  4. EMEND(APREPITANT) [Concomitant]
  5. ALOXI(PALONOSETRON HYDROCHLORIDE) [Concomitant]
  6. DECADRON(DEXAMETHASONE) [Concomitant]
  7. CALCIUM GLUCONATE (CALCIUM GLUCONATE) [Concomitant]
  8. MAG SULFATE (MAGNESIUM SULFATE) [Concomitant]

REACTIONS (8)
  - Neck pain [None]
  - Back pain [None]
  - Pain [None]
  - Arthralgia [None]
  - Headache [None]
  - Flushing [None]
  - Dizziness [None]
  - Feeling hot [None]
